FAERS Safety Report 8956233 (Version 3)
Quarter: 2013Q2

REPORT INFORMATION
  Report Type: Report from Study
  Country: BE (occurrence: BE)
  Receive Date: 20121210
  Receipt Date: 20130511
  Transmission Date: 20140414
  Serious: Yes (Hospitalization)
  Sender: FDA-Public Use
  Company Number: BE-ABBOTT-12P-013-1018212-00

PATIENT
  Age: 66 Year
  Sex: Female
  Weight: 66 kg

DRUGS (6)
  1. HUMIRA [Suspect]
     Indication: RHEUMATOID ARTHRITIS
     Dates: start: 20090717
  2. DICLOFENAC [Concomitant]
     Indication: PRODUCT USED FOR UNKNOWN INDICATION
     Dosage: 15MG/DAY
     Dates: start: 20120115
  3. EPSIPAM [Concomitant]
     Indication: PRODUCT USED FOR UNKNOWN INDICATION
     Dates: start: 20060808
  4. DAFALGAN [Concomitant]
     Indication: PRODUCT USED FOR UNKNOWN INDICATION
     Dosage: AS NEEDED
  5. NEXIAM [Concomitant]
     Indication: PROPHYLAXIS
     Dosage: 20MG/DAY
     Dates: start: 20090312
  6. NEXIAM [Concomitant]
     Indication: GASTRIC DISORDER

REACTIONS (2)
  - Intervertebral disc degeneration [Recovered/Resolved]
  - Back pain [Recovered/Resolved]
